FAERS Safety Report 17195687 (Version 3)
Quarter: 2020Q4

REPORT INFORMATION
  Report Type: Spontaneous
  Country: US (occurrence: US)
  Receive Date: 20191224
  Receipt Date: 20201003
  Transmission Date: 20210113
  Serious: Yes (Hospitalization, Other)
  Sender: FDA-Public Use
  Company Number: US-LUPIN PHARMACEUTICALS INC.-2019-08478

PATIENT
  Age: 57 Year
  Sex: Female
  Weight: 56.24 kg

DRUGS (1)
  1. GAVILYTE G [Suspect]
     Active Substance: POLYETHYLENE GLYCOL 3350\POTASSIUM CHLORIDE\SODIUM BICARBONATE\SODIUM CHLORIDE\SODIUM SULFATE
     Indication: BOWEL PREPARATION
     Dosage: UNK, 1 CUP EVERY 15 MINUTES
     Route: 048
     Dates: start: 20190815, end: 20190815

REACTIONS (6)
  - Dyspnoea [Recovered/Resolved]
  - Nausea [Recovered/Resolved]
  - Oesophageal haemorrhage [Recovered/Resolved]
  - Oesophageal rupture [Not Recovered/Not Resolved]
  - Weight decreased [Recovering/Resolving]
  - Vomiting [Recovered/Resolved]

NARRATIVE: CASE EVENT DATE: 20190815
